FAERS Safety Report 20680079 (Version 1)
Quarter: 2022Q2

REPORT INFORMATION
  Report Type: Spontaneous
  Country: US (occurrence: None)
  Receive Date: 20220405
  Receipt Date: 20220405
  Transmission Date: 20220721
  Serious: Yes (Other)
  Sender: FDA-Public Use
  Company Number: None

PATIENT
  Age: 69 Year
  Sex: Female
  Weight: 70.2 kg

DRUGS (6)
  1. VERZENIO [Suspect]
     Active Substance: ABEMACICLIB
     Indication: Recurrent cancer
     Dosage: OTHER QUANTITY : 1 TABLET(S)?FREQUENCY : TWICE A DAY?
     Route: 048
     Dates: start: 20220103
  2. VERZENIO [Suspect]
     Active Substance: ABEMACICLIB
     Indication: Prophylaxis
  3. VERZENIO [Concomitant]
     Active Substance: ABEMACICLIB
  4. FULVESTRANT [Concomitant]
     Active Substance: FULVESTRANT
  5. IMODIUM [Concomitant]
     Active Substance: LOPERAMIDE HYDROCHLORIDE
  6. VITAMIN D [Concomitant]
     Active Substance: VITAMIN D NOS

REACTIONS (1)
  - Ageusia [None]

NARRATIVE: CASE EVENT DATE: 20220119
